FAERS Safety Report 9261750 (Version 1)
Quarter: 2013Q2

REPORT INFORMATION
  Report Type: Report from Study
  Country: US (occurrence: US)
  Receive Date: 20130429
  Receipt Date: 20130429
  Transmission Date: 20140414
  Serious: Yes (Hospitalization)
  Sender: FDA-Public Use
  Company Number: US-TEVA-352961USA

PATIENT
  Age: 51 Year
  Sex: Female

DRUGS (1)
  1. COPAXONE [Suspect]
     Indication: MULTIPLE SCLEROSIS
     Route: 058
     Dates: start: 20100814, end: 20101126

REACTIONS (4)
  - Blood glucose fluctuation [Recovered/Resolved]
  - Pneumonia [Recovered/Resolved]
  - Convulsion [Recovered/Resolved]
  - Blood pressure increased [Recovered/Resolved]
